FAERS Safety Report 4704699-1 (Version None)
Quarter: 2005Q2

REPORT INFORMATION
  Report Type: 
  Country: None (occurrence: None)
  Receive Date: 20050629
  Receipt Date: 20050621
  Transmission Date: 20051028
  Serious: Yes (Life-Threatening, Hospitalization)
  Sender: FDA-Public Use
  Company Number: CIP05001255

PATIENT
  Age: 81 Year
  Sex: Female

DRUGS (1)
  1. DIDRONEL [Suspect]
     Indication: OSTEOPOROSIS
     Dosage: 200 MG DAILY, ORAL
     Route: 048
     Dates: start: 20050510, end: 20050523

REACTIONS (8)
  - BLOOD CALCIUM DECREASED [None]
  - BLOOD CREATINE PHOSPHOKINASE INCREASED [None]
  - BLOOD UREA INCREASED [None]
  - CHOLANGITIS [None]
  - CHOLELITHIASIS [None]
  - CYTOMEGALOVIRUS HEPATITIS [None]
  - EPSTEIN-BARR VIRUS ANTIGEN POSITIVE [None]
  - HEPATIC FUNCTION ABNORMAL [None]
